FAERS Safety Report 24430459 (Version 1)
Quarter: 2024Q4

REPORT INFORMATION
  Report Type: Spontaneous
  Country: US (occurrence: US)
  Receive Date: 20241013
  Receipt Date: 20241013
  Transmission Date: 20250115
  Serious: Yes (Death, Hospitalization, Other)
  Sender: DR REDDYS
  Company Number: US-DRL-USA-LIT/USA/24/0014807

PATIENT
  Age: 71 Year
  Sex: Female

DRUGS (4)
  1. DAPTOMYCIN [Suspect]
     Active Substance: DAPTOMYCIN
     Indication: Prosthetic valve endocarditis
  2. RIFAMPIN [Suspect]
     Active Substance: RIFAMPIN
     Indication: Prosthetic valve endocarditis
  3. CEFTRIAXONE [Concomitant]
     Active Substance: CEFTRIAXONE
     Indication: Evidence based treatment
  4. VANCOMYCIN [Concomitant]
     Active Substance: VANCOMYCIN
     Indication: Evidence based treatment

REACTIONS (8)
  - Cardiac arrest [Fatal]
  - Pulseless electrical activity [Unknown]
  - Septic shock [Unknown]
  - Bundle branch block right [Unknown]
  - Drug ineffective for unapproved indication [Unknown]
  - Shock [Unknown]
  - Multiple organ dysfunction syndrome [Unknown]
  - Pneumonia pseudomonal [Unknown]
